FAERS Safety Report 6265693-5 (Version None)
Quarter: 2009Q3

REPORT INFORMATION
  Report Type: 
  Country: None (occurrence: None)
  Receive Date: 20090713
  Receipt Date: 20090327
  Transmission Date: 20100115
  Serious: No
  Sender: FDA-Public Use
  Company Number: US-BAYER-200917188NA

PATIENT
  Age: 18 Year
  Sex: Female
  Weight: 73 kg

DRUGS (1)
  1. YAZ [Suspect]
     Indication: ACNE
     Route: 048
     Dates: start: 20080701

REACTIONS (2)
  - NASAL CONGESTION [None]
  - RESPIRATORY DISORDER [None]
